FAERS Safety Report 5272921-1 (Version None)
Quarter: 2007Q1

REPORT INFORMATION
  Report Type: 
  Country: None (occurrence: None)
  Receive Date: 20070322
  Receipt Date: 20061013
  Transmission Date: 20070707
  Serious: Yes (Other)
  Sender: FDA-Public Use
  Company Number: IE-AVENTIS-200619985GDDC

PATIENT
  Sex: Male
  Weight: 5.16 kg

DRUGS (5)
  1. LANTUS [Suspect]
     Route: 064
     Dates: end: 20060829
  2. LANTUS [Suspect]
     Route: 065
     Dates: start: 20060829
  3. HUMALOG                            /00030501/ [Suspect]
     Route: 064
     Dates: end: 20060704
  4. NOVORAPID [Suspect]
     Route: 064
     Dates: start: 20060704, end: 20060829
  5. NOVORAPID [Suspect]
     Route: 065
     Dates: start: 20060829

REACTIONS (2)
  - SEPSIS [None]
  - TRANSIENT TACHYPNOEA OF THE NEWBORN [None]
